FAERS Safety Report 12508300 (Version 1)
Quarter: 2016Q2

REPORT INFORMATION
  Report Type: Spontaneous
  Country: JP (occurrence: JP)
  Receive Date: 20160629
  Receipt Date: 20160629
  Transmission Date: 20160815
  Serious: Yes (Other)
  Sender: FDA-Public Use
  Company Number: JP-GLAXOSMITHKLINE-JP2016JPN089188

PATIENT

DRUGS (4)
  1. SERETIDE [Suspect]
     Active Substance: FLUTICASONE PROPIONATE\SALMETEROL XINAFOATE
     Indication: ASTHMA
     Route: 055
  2. ALLERMIST [Suspect]
     Active Substance: FLUTICASONE FUROATE
     Route: 045
  3. RELVAR ELLIPTA [Suspect]
     Active Substance: FLUTICASONE FUROATE\VILANTEROL TRIFENATATE
     Indication: ASTHMA
     Route: 055
  4. RINDERON V [Suspect]
     Active Substance: BETAMETHASONE VALERATE
     Route: 045

REACTIONS (2)
  - Fungal rhinitis [Unknown]
  - Fungal oesophagitis [Unknown]
